FAERS Safety Report 16301630 (Version 2)
Quarter: 2019Q2

REPORT INFORMATION
  Report Type: Spontaneous
  Country: TW (occurrence: TW)
  Receive Date: 20190511
  Receipt Date: 20190521
  Transmission Date: 20190711
  Serious: Yes (Hospitalization, Other)
  Sender: FDA-Public Use
  Company Number: TW-AMGEN-TWNSP2019067083

PATIENT
  Age: 80 Year
  Sex: Female

DRUGS (2)
  1. TRAMACET [Concomitant]
     Active Substance: ACETAMINOPHEN\TRAMADOL
     Indication: RHEUMATOID ARTHRITIS
     Dosage: 1 DOSAGE FORM, BID
  2. ENBREL [Suspect]
     Active Substance: ETANERCEPT
     Indication: RHEUMATOID ARTHRITIS
     Dosage: 25 MG, BIW
     Route: 058
     Dates: start: 20170412, end: 20190417

REACTIONS (3)
  - Pyrexia [Recovering/Resolving]
  - Cellulitis [Not Recovered/Not Resolved]
  - Respiratory distress [Recovering/Resolving]

NARRATIVE: CASE EVENT DATE: 20190420
